FAERS Safety Report 23545677 (Version 3)
Quarter: 2024Q1

REPORT INFORMATION
  Report Type: Report from Study
  Country: US (occurrence: US)
  Receive Date: 20240220
  Receipt Date: 20240313
  Transmission Date: 20240410
  Serious: Yes (Hospitalization, Other)
  Sender: FDA-Public Use
  Company Number: US-ARGENX-2023-ARGX-US002891

PATIENT

DRUGS (2)
  1. VYVGART [Suspect]
     Active Substance: EFGARTIGIMOD ALFA-FCAB
     Indication: Myasthenia gravis
     Dosage: 1040 MG,ONCE WEEKLY FOR 4 WEEK CYCLE
     Route: 042
     Dates: start: 20230816
  2. VYVGART [Suspect]
     Active Substance: EFGARTIGIMOD ALFA-FCAB
     Dosage: UNK
     Route: 042
     Dates: start: 20230818

REACTIONS (26)
  - Dyspnoea [Unknown]
  - Aspiration [Unknown]
  - Dyspnoea at rest [Unknown]
  - Fall [Unknown]
  - Back injury [Unknown]
  - Lumbar vertebral fracture [Unknown]
  - Fall [Unknown]
  - Urine odour abnormal [Unknown]
  - Skin laceration [Unknown]
  - Skin abrasion [Unknown]
  - Muscular weakness [Unknown]
  - Skin discolouration [Unknown]
  - Oedema peripheral [Unknown]
  - Insomnia [Unknown]
  - Diplopia [Unknown]
  - Dysphonia [Unknown]
  - Dysarthria [Unknown]
  - Hypertension [Unknown]
  - Loss of personal independence in daily activities [Unknown]
  - Eyelid ptosis [Unknown]
  - Fall [Unknown]
  - Cystitis [Unknown]
  - Fatigue [Unknown]
  - Myasthenia gravis [Recovering/Resolving]
  - Heart rate increased [Recovered/Resolved]
  - Dyspnoea [Recovered/Resolved]

NARRATIVE: CASE EVENT DATE: 20240101
